FAERS Safety Report 8284149-1 (Version None)
Quarter: 2012Q2

REPORT INFORMATION
  Report Type: 
  Country: None (occurrence: None)
  Receive Date: 20120413
  Receipt Date: 20120217
  Transmission Date: 20120825
  Serious: No
  Sender: FDA-Public Use
  Company Number: US-ASTRAZENECA-2012SE11503

PATIENT
  Sex: Male

DRUGS (5)
  1. NEXIUM [Suspect]
     Indication: GASTROOESOPHAGEAL REFLUX DISEASE
     Route: 048
  2. BISMUTH SUBSALICYLATE [Concomitant]
  3. CHEWABLE ANTACIDS [Concomitant]
  4. NEXIUM [Suspect]
     Indication: CHEST PAIN
     Route: 048
  5. OMEPRAZOLE [Suspect]
     Indication: CHEST PAIN
     Route: 048

REACTIONS (3)
  - OFF LABEL USE [None]
  - CHEST PAIN [None]
  - BACK PAIN [None]
